FAERS Safety Report 9491417 (Version 2)
Quarter: 2013Q1

REPORT INFORMATION
  Report Type: Not Available
  Country: US (occurrence: US)
  Receive Date: 20120619
  Receipt Date: 20120619
  Transmission Date: 20140127
  Serious: Yes (Hospitalization)
  Sender: FDA-Public Use
  Company Number: US-LUNDBECK-DKLU1069592

PATIENT
  Age: 22 None
  Sex: Female
  Weight: 89.6 kg

DRUGS (13)
  1. CLOBAZAM [Suspect]
     Indication: LENNOX-GASTAUT SYNDROME
     Route: 048
     Dates: start: 20090430
  2. CLOBAZAM [Suspect]
     Route: 048
     Dates: start: 20090430
  3. CLOBAZAM [Suspect]
     Route: 048
     Dates: start: 20090430
  4. LAMOTRIGINE [Concomitant]
     Indication: CONVULSION
     Route: 048
     Dates: start: 20100202
  5. LAMOTRIGINE [Concomitant]
     Route: 048
     Dates: start: 20100202
  6. LAMOTRIGINE [Concomitant]
     Route: 048
     Dates: start: 20100202
  7. BANZEL [Concomitant]
     Indication: CONVULSION
     Route: 048
     Dates: start: 20100510
  8. RISPERIDONE [Concomitant]
     Indication: ANXIETY
     Route: 048
     Dates: start: 20100511
  9. FLUOXETINE [Concomitant]
     Indication: ANXIETY
     Route: 048
     Dates: start: 20100511
  10. ZOLPIDEM TARTRATE [Concomitant]
     Indication: INSOMNIA
     Route: 048
     Dates: start: 20100511
  11. Z-PAK [Concomitant]
     Indication: UPPER RESPIRATORY TRACT INFECTION
     Route: 048
     Dates: start: 20100622
  12. TEMAZEPAM [Concomitant]
     Indication: SLEEP DISORDER
     Route: 048
     Dates: start: 20100917
  13. LASIX [Concomitant]
     Indication: GENERALISED OEDEMA
     Route: 048
     Dates: start: 20101109

REACTIONS (1)
  - Hypokalaemia [Recovered/Resolved]
